FAERS Safety Report 10066165 (Version 4)
Quarter: 2014Q3

REPORT INFORMATION
  Report Type: Spontaneous
  Country: AU (occurrence: AU)
  Receive Date: 20140408
  Receipt Date: 20140909
  Transmission Date: 20150326
  Serious: Yes (Other)
  Sender: FDA-Public Use
  Company Number: ALCN2014AU002134

PATIENT
  Age: 79 Year
  Sex: Male

DRUGS (3)
  1. EPINEPHRINE. [Concomitant]
     Active Substance: EPINEPHRINE
     Dosage: 0.5 ML, UNK
     Route: 065
     Dates: start: 20140324, end: 20140324
  2. BETADINE [Concomitant]
     Active Substance: POVIDONE-IODINE
     Dosage: 1 DF, UNK
     Route: 047
     Dates: start: 20140324, end: 20140324
  3. BSS [Suspect]
     Active Substance: CALCIUM CHLORIDE\MAGNESIUM CHLORIDE\POTASSIUM CHLORIDE\SODIUM ACETATE\SODIUM CHLORIDE\SODIUM CITRATE
     Dosage: 500 ML, UNK
     Route: 031
     Dates: start: 20140324, end: 20140324

REACTIONS (2)
  - Off label use [Unknown]
  - Toxic anterior segment syndrome [Recovering/Resolving]

NARRATIVE: CASE EVENT DATE: 20140324
